FAERS Safety Report 5191179-5 (Version None)
Quarter: 2006Q4

REPORT INFORMATION
  Report Type: 
  Country: None (occurrence: None)
  Receive Date: 20061218
  Receipt Date: 20061128
  Transmission Date: 20070319
  Serious: Yes (Hospitalization)
  Sender: FDA-Public Use
  Company Number: 2006150397

PATIENT
  Age: 20 Month
  Sex: Female

DRUGS (4)
  1. VIRACEPT [Suspect]
     Indication: HIV TEST POSITIVE
     Dosage: 250 MG, ORAL
     Route: 048
  2. COMBIVIR [Suspect]
     Indication: HIV TEST POSITIVE
     Dosage: ORAL
     Route: 048
  3. SUSTIVA [Suspect]
     Indication: HIV TEST POSITIVE
     Dosage: ORAL
     Route: 048
     Dates: end: 20010717
  4. RETROVIR [Suspect]
     Dosage: INTRAVENOUS
     Route: 042

REACTIONS (5)
  - CLONUS [None]
  - HYPERLACTACIDAEMIA [None]
  - HYPOCALCAEMIA [None]
  - LACTIC ACIDOSIS [None]
  - STRABISMUS [None]
